FAERS Safety Report 11414714 (Version 1)
Quarter: 2015Q3

REPORT INFORMATION
  Report Type: Report from Study
  Country: DE (occurrence: DE)
  Receive Date: 20150825
  Receipt Date: 20150825
  Transmission Date: 20151125
  Serious: Yes (Hospitalization)
  Sender: FDA-Public Use
  Company Number: DE-ROCHE-1396203

PATIENT
  Age: 74 Year
  Sex: Female
  Weight: 63 kg

DRUGS (3)
  1. CARBOPLATIN. [Suspect]
     Active Substance: CARBOPLATIN
     Indication: OVARIAN CANCER
     Dosage: AUC5=472.1 -530 MG
     Route: 042
     Dates: start: 20131015, end: 20140107
  2. BEVACIZUMAB [Suspect]
     Active Substance: BEVACIZUMAB
     Indication: OVARIAN CANCER
     Dosage: 930-945 MG
     Route: 042
     Dates: start: 20131015, end: 20140211
  3. PACLITAXEL. [Suspect]
     Active Substance: PACLITAXEL
     Indication: OVARIAN CANCER
     Dosage: 290 MG
     Route: 042
     Dates: start: 20131015, end: 20140107

REACTIONS (7)
  - Thoracic vertebral fracture [Not Recovered/Not Resolved]
  - Pain [Recovered/Resolved]
  - Hypoaesthesia [Unknown]
  - Polyneuropathy [Not Recovered/Not Resolved]
  - Pancytopenia [Recovered/Resolved]
  - Fall [Unknown]
  - Peripheral paralysis [Not Recovered/Not Resolved]

NARRATIVE: CASE EVENT DATE: 20140314
